FAERS Safety Report 14187942 (Version 1)
Quarter: 2017Q4

REPORT INFORMATION
  Report Type: Spontaneous
  Country: JP (occurrence: JP)
  Receive Date: 20171114
  Receipt Date: 20171114
  Transmission Date: 20180321
  Serious: Yes (Death)
  Sender: FDA-Public Use
  Company Number: JP-ELI_LILLY_AND_COMPANY-JP201711004119

PATIENT
  Age: 74 Year
  Sex: Male
  Weight: 54 kg

DRUGS (16)
  1. CRESTOR OD [Concomitant]
     Active Substance: ROSUVASTATIN CALCIUM
     Dosage: UNK
     Route: 048
     Dates: end: 20170426
  2. LYRICA [Concomitant]
     Active Substance: PREGABALIN
     Dosage: UNK
     Route: 048
     Dates: end: 20170426
  3. LEUCON                             /00300201/ [Concomitant]
     Active Substance: ADENINE
     Dosage: 5 MG, TID
     Route: 048
     Dates: start: 20170421, end: 20170426
  4. GRAN [Concomitant]
     Active Substance: FILGRASTIM
     Dosage: UNK
     Dates: start: 20170425, end: 20170428
  5. CYRAMZA [Suspect]
     Active Substance: RAMUCIRUMAB
     Indication: GASTRIC CANCER
     Dosage: 400 MG, OTHER
     Route: 041
     Dates: start: 20170413, end: 20170413
  6. TAZOPIPE [Concomitant]
     Active Substance: PIPERACILLIN SODIUM\TAZOBACTAM SODIUM
     Dosage: 4.5 MG, TID
     Route: 042
     Dates: start: 20170424, end: 20170425
  7. NICORANDIL [Concomitant]
     Active Substance: NICORANDIL
     Dosage: UNK
     Route: 048
     Dates: end: 20170513
  8. FERROUS CITRATE NA [Concomitant]
     Active Substance: SODIUM FERROUS CITRATE
     Dosage: UNK
     Route: 048
     Dates: start: 20170422, end: 20170426
  9. MEROPEN                            /01250501/ [Concomitant]
     Active Substance: MEROPENEM
     Dosage: 0.5 G, TID
     Route: 041
     Dates: start: 20170425, end: 20170430
  10. PACLITAXEL. [Suspect]
     Active Substance: PACLITAXEL
     Indication: GASTRIC CANCER
     Dosage: 100 MG, OTHER
     Route: 041
     Dates: start: 20170413, end: 20170420
  11. GASTER [Concomitant]
     Active Substance: FAMOTIDINE
     Dosage: UNK
     Dates: start: 20170413, end: 20170420
  12. POLARAMINE [Concomitant]
     Active Substance: DEXCHLORPHENIRAMINE MALEATE
     Dosage: UNK
     Dates: start: 20170413, end: 20170420
  13. TAZOPIPE [Concomitant]
     Active Substance: PIPERACILLIN SODIUM\TAZOBACTAM SODIUM
     Dosage: 4.5 MG, TID
     Route: 042
     Dates: start: 20170509, end: 20170513
  14. TRAMCET [Concomitant]
     Active Substance: ACETAMINOPHEN\TRAMADOL
     Dosage: UNK
     Route: 048
     Dates: end: 20170426
  15. NEXIUM [Concomitant]
     Active Substance: ESOMEPRAZOLE MAGNESIUM
     Dosage: UNK
     Route: 048
     Dates: end: 20170513
  16. DEXART [Concomitant]
     Active Substance: DEXAMETHASONE SODIUM PHOSPHATE
     Dosage: UNK
     Dates: start: 20170413, end: 20170420

REACTIONS (3)
  - Neutropenia [Unknown]
  - Interstitial lung disease [Fatal]
  - Cough [Unknown]

NARRATIVE: CASE EVENT DATE: 20170420
